FAERS Safety Report 15373461 (Version 2)
Quarter: 2018Q4

REPORT INFORMATION
  Report Type: Report from Study
  Country: CA (occurrence: CA)
  Receive Date: 20180912
  Receipt Date: 20181206
  Transmission Date: 20190204
  Serious: Yes (Other)
  Sender: FDA-Public Use
  Company Number: PHHY2018CA016947

PATIENT
  Age: 77 Year
  Sex: Male

DRUGS (3)
  1. ELIQUIS [Suspect]
     Active Substance: APIXABAN
     Indication: PRODUCT USED FOR UNKNOWN INDICATION
     Dosage: 1 DF, BID
     Route: 065
     Dates: start: 20180509
  2. ENTRESTO [Suspect]
     Active Substance: SACUBITRIL\VALSARTAN
     Indication: CARDIAC FAILURE
     Dosage: 1 DF (SACUBITRIL 49 MG AND VALSARTAN 51 MG), BID
     Route: 048
     Dates: start: 20180412
  3. ENTRESTO [Suspect]
     Active Substance: SACUBITRIL\VALSARTAN
     Dosage: 1 DF (SACUBITRIL 97 MG AND VALSARTAN 103 MG), BID
     Route: 048

REACTIONS (6)
  - Thrombosis [Unknown]
  - Blood potassium increased [Unknown]
  - Bronchitis [Unknown]
  - Blood creatinine increased [Unknown]
  - Weight increased [Unknown]
  - Erythema [Unknown]

NARRATIVE: CASE EVENT DATE: 20180509
